FAERS Safety Report 23731765 (Version 1)
Quarter: 2024Q2

REPORT INFORMATION
  Report Type: Report from Study
  Country: US (occurrence: None)
  Receive Date: 20240411
  Receipt Date: 20240411
  Transmission Date: 20240716
  Serious: Yes (Life-Threatening, Other)
  Sender: FDA-Public Use
  Company Number: US-ADIENNEP-2021AD000117

PATIENT
  Sex: Male

DRUGS (3)
  1. THIOTEPA [Suspect]
     Active Substance: THIOTEPA
     Indication: Autologous haematopoietic stem cell transplant
     Dates: start: 201711, end: 201711
  2. ETOPOSIDE [Suspect]
     Active Substance: ETOPOSIDE
     Indication: Autologous haematopoietic stem cell transplant
     Dates: start: 201711, end: 201711
  3. CARBOPLATIN [Suspect]
     Active Substance: CARBOPLATIN
     Indication: Autologous haematopoietic stem cell transplant
     Dosage: AUC OF 7/DAY ? 3 DAYS ()
     Dates: start: 201711, end: 201711

REACTIONS (8)
  - Respiratory failure [Unknown]
  - Sepsis [Unknown]
  - Renal failure [Unknown]
  - Pyrexia [Unknown]
  - Pneumonitis [Unknown]
  - Engraftment syndrome [Unknown]
  - Cholecystitis [Unknown]
  - Staphylococcal bacteraemia [Unknown]

NARRATIVE: CASE EVENT DATE: 20171101
